FAERS Safety Report 5101834-0 (Version None)
Quarter: 2006Q3

REPORT INFORMATION
  Report Type: 
  Country: None (occurrence: None)
  Receive Date: 20060731
  Receipt Date: 20060620
  Transmission Date: 20061208
  Serious: No
  Sender: FDA-Public Use
  Company Number: 2006PV016010

PATIENT
  Age: 76 Year
  Sex: Male
  Weight: 95.2554 kg

DRUGS (5)
  1. BYETTA [Suspect]
     Indication: DIABETES MELLITUS NON-INSULIN-DEPENDENT
     Dosage: 5 MCG;BID;SC
     Route: 058
     Dates: start: 20060613
  2. AMARYL [Concomitant]
  3. ACTOS /USA/ [Concomitant]
  4. HUMALOG MIX 75/25 [Concomitant]
  5. HUMALOG [Concomitant]

REACTIONS (3)
  - ERUCTATION [None]
  - NAUSEA [None]
  - WEIGHT DECREASED [None]
